FAERS Safety Report 16068395 (Version 1)
Quarter: 2019Q1

REPORT INFORMATION
  Report Type: Spontaneous
  Country: GB (occurrence: AE)
  Receive Date: 20190313
  Receipt Date: 20190313
  Transmission Date: 20190418
  Serious: Yes (Other)
  Sender: FDA-Public Use
  Company Number: GB-TEVA-2019-GB-1022253

PATIENT
  Age: 18 Year
  Sex: Female
  Weight: 38 kg

DRUGS (3)
  1. CLARITHROMYCIN. [Suspect]
     Active Substance: CLARITHROMYCIN
     Route: 065
     Dates: start: 20181212, end: 20181217
  2. ELLAONE [Concomitant]
     Active Substance: ULIPRISTAL ACETATE
     Dosage: AS DIRECTED
     Dates: start: 20181231, end: 20190101
  3. CHLORAMPHENICOL [Concomitant]
     Active Substance: CHLORAMPHENICOL
     Dosage: 4 DOSAGE FORMS DAILY;
     Dates: start: 20181211, end: 20181216

REACTIONS (2)
  - Lip swelling [Recovered/Resolved]
  - Eye swelling [Recovered/Resolved]
